FAERS Safety Report 10753755 (Version 1)
Quarter: 2015Q1

REPORT INFORMATION
  Report Type: Report from Study
  Country: ES (occurrence: ES)
  Receive Date: 20150201
  Receipt Date: 20150201
  Transmission Date: 20150721
  Serious: Yes (Other)
  Sender: FDA-Public Use
  Company Number: ES-MYLANLABS-2015M1002307

PATIENT

DRUGS (6)
  1. BEXAROTENE [Suspect]
     Active Substance: BEXAROTENE
     Indication: MYCOSIS FUNGOIDES
     Dosage: 150MG/M2 DAILY FOR 14D; THEN 300MG/M2 DAILY
     Route: 065
  2. ACICLOVIR [Concomitant]
     Active Substance: ACYCLOVIR
     Dosage: 400MG TWICE DAILY THREE TIMES PER WEEK
     Route: 048
  3. PENTOSTATIN. [Suspect]
     Active Substance: PENTOSTATIN
     Indication: MYCOSIS FUNGOIDES
     Dosage: 4MG/M2 EVERY 2WKS
     Route: 065
  4. PENTOSTATIN. [Suspect]
     Active Substance: PENTOSTATIN
     Indication: OFF LABEL USE
  5. COTRIMOXAZOLE [Concomitant]
     Active Substance: SULFAMETHOXAZOLE\TRIMETHOPRIM
     Dosage: DF = TRIMETHOPRIM 800MG/SULFAMETHOXAZOLE 160MG
     Route: 065
  6. CYCLOPHOSPHAMIDE. [Suspect]
     Active Substance: CYCLOPHOSPHAMIDE
     Indication: MYCOSIS FUNGOIDES
     Dosage: 600MG/M2 EVERY 2WKS
     Route: 065

REACTIONS (1)
  - Tumour lysis syndrome [Unknown]
